FAERS Safety Report 7302136 (Version 2)
Quarter: 2014Q3

REPORT INFORMATION
  Report Type: Spontaneous
  Country: US (occurrence: None)
  Receive Date: 20100212
  Receipt Date: 20140908
  Transmission Date: 20150326
  Serious: Yes (Hospitalization, Other)
  Sender: FDA-Public Use
  Company Number: 2009S1006272

PATIENT
  Age: 72 Year
  Sex: Male

DRUGS (12)
  1. THEOPHYLLINE [Concomitant]
     Active Substance: THEOPHYLLINE
  2. AVAPRO [Concomitant]
     Active Substance: IRBESARTAN
  3. TRIAZOLAM. [Concomitant]
     Active Substance: TRIAZOLAM
  4. PRAVASTATIN [Concomitant]
     Active Substance: PRAVASTATIN\PRAVASTATIN SODIUM
  5. PULMICORT TURBUHALER [Concomitant]
     Active Substance: BUDESONIDE
  6. PHOSPHO-SODA [Suspect]
     Active Substance: SODIUM PHOSPHATE, DIBASIC\SODIUM PHOSPHATE, MONOBASIC
     Indication: COLONOSCOPY
     Route: 048
     Dates: start: 20081204, end: 20081204
  7. SINGULAIR [Concomitant]
     Active Substance: MONTELUKAST SODIUM
  8. FLEXERIL [Concomitant]
     Active Substance: CYCLOBENZAPRINE HYDROCHLORIDE
  9. FLEET [Suspect]
     Active Substance: BISACODYL\GLYCERIN\MINERAL OIL\SODIUM PHOSPHATE, DIBASIC\SODIUM PHOSPHATE, MONOBASIC
     Indication: COLONOSCOPY
     Route: 054
  10. SEREVENT [Concomitant]
     Active Substance: SALMETEROL XINAFOATE
  11. ASPIRIN. [Concomitant]
     Active Substance: ASPIRIN
  12. ALBUTEROL. [Concomitant]
     Active Substance: ALBUTEROL

REACTIONS (14)
  - Upper respiratory tract infection [None]
  - Hyperkalaemia [None]
  - Vitamin D deficiency [None]
  - Renal failure acute [None]
  - Nasopharyngitis [None]
  - Weight decreased [None]
  - Acute phosphate nephropathy [None]
  - Hyperparathyroidism secondary [None]
  - Renal failure chronic [None]
  - Renal tubular disorder [None]
  - Urinary hesitation [None]
  - Renal disorder [None]
  - Pharyngitis [None]
  - Nocturia [None]

NARRATIVE: CASE EVENT DATE: 20090129
